FAERS Safety Report 15549723 (Version 2)
Quarter: 2018Q4

REPORT INFORMATION
  Report Type: Spontaneous
  Country: US (occurrence: US)
  Receive Date: 20181025
  Receipt Date: 20181105
  Transmission Date: 20190205
  Serious: No
  Sender: FDA-Public Use
  Company Number: US-TEVA-2018-US-965165

PATIENT
  Sex: Female

DRUGS (1)
  1. JUNEL [Suspect]
     Active Substance: ETHINYL ESTRADIOL\NORETHINDRONE ACETATE
     Indication: CONTRACEPTION
     Dosage: 1 MG/20 MCG
     Route: 065

REACTIONS (5)
  - Dizziness [Recovered/Resolved]
  - Product quality issue [Unknown]
  - Dysstasia [Recovered/Resolved]
  - Impaired driving ability [Recovered/Resolved]
  - Vertigo [Recovered/Resolved]
